FAERS Safety Report 16049322 (Version 1)
Quarter: 2019Q1

REPORT INFORMATION
  Report Type: Spontaneous
  Country: US (occurrence: US)
  Receive Date: 20190307
  Receipt Date: 20190307
  Transmission Date: 20190418
  Serious: Yes (Other)
  Sender: FDA-Public Use
  Company Number: US-PFIZER INC-2019025243

PATIENT
  Age: 80 Year
  Sex: Male

DRUGS (2)
  1. LYRICA [Suspect]
     Active Substance: PREGABALIN
     Indication: PAIN IN EXTREMITY
  2. LYRICA [Suspect]
     Active Substance: PREGABALIN
     Indication: MUSCULAR WEAKNESS
     Dosage: 100 MG, 2X/DAY [TWO CAPSULES IN THE MORNING AND TWO IN THE EVENING]
     Route: 048

REACTIONS (4)
  - Retinal disorder [Unknown]
  - Central vision loss [Unknown]
  - Macular degeneration [Unknown]
  - Metamorphopsia [Unknown]
